FAERS Safety Report 8807680 (Version 2)
Quarter: 2012Q4

REPORT INFORMATION
  Report Type: 
  Country: US (occurrence: US)
  Receive Date: 20120925
  Receipt Date: 20121107
  Transmission Date: 20130627
  Serious: No
  Sender: FDA-Public Use
  Company Number: US-BIOGENIDEC-2012BI039157

PATIENT
  Sex: Male

DRUGS (1)
  1. TYSABRI [Suspect]
     Indication: MULTIPLE SCLEROSIS
     Route: 042
     Dates: start: 20120629

REACTIONS (4)
  - Liver function test abnormal [Not Recovered/Not Resolved]
  - Abdominal pain upper [Unknown]
  - Dehydration [Unknown]
  - Constipation [Unknown]
